FAERS Safety Report 6593493 (Version 2)
Quarter: 2020Q3

REPORT INFORMATION
  Report Type: Report from Study
  Country: US (occurrence: US)
  Receive Date: 20080326
  Receipt Date: 20080402
  Transmission Date: 20201105
  Serious: Yes (Death)
  Sender: FDA-Public Use
  Company Number: US-ROCHE-553733

PATIENT
  Sex: Female

DRUGS (1)
  1. IBANDRONIC ACID. [Suspect]
     Active Substance: IBANDRONIC ACID
     Indication: OSTEOPOROSIS
     Dosage: REPORTED AS ^1 PILL MONTH^
     Route: 065
     Dates: start: 2005, end: 200802

REACTIONS (1)
  - Hepatic cancer [Fatal]
